FAERS Safety Report 5602290-6 (Version None)
Quarter: 2008Q1

REPORT INFORMATION
  Report Type: 
  Country: None (occurrence: None)
  Receive Date: 20080125
  Receipt Date: 20080116
  Transmission Date: 20080703
  Serious: Yes (Hospitalization)
  Sender: FDA-Public Use
  Company Number: US-ROCHE-522185

PATIENT
  Age: 46 Year
  Sex: Female
  Weight: 53.1 kg

DRUGS (5)
  1. PEG-INTERFERON A-2A (RO 25-8310) [Suspect]
     Dosage: FORMULATION: PRE-FILLED SYRINGE. PATIENT IN WEEK 27 OF THERAPY.
     Route: 065
     Dates: start: 20070716
  2. RIBAVIRIN (NON-ROCHE) [Suspect]
     Route: 065
  3. RIBAVIRIN (NON-ROCHE) [Suspect]
     Dosage: PATIENT IN WEEK 27 OF THERAPY.
     Route: 065
  4. WELLBUTRIN [Suspect]
     Indication: DRUG USE FOR UNKNOWN INDICATION
     Route: 065
  5. REMERON [Suspect]
     Indication: DRUG USE FOR UNKNOWN INDICATION
     Route: 065

REACTIONS (9)
  - ANAEMIA [None]
  - CONVULSION [None]
  - DIARRHOEA [None]
  - INSOMNIA [None]
  - NAUSEA [None]
  - ORAL PAIN [None]
  - PAIN [None]
  - VOMITING [None]
  - WEIGHT DECREASED [None]
